FAERS Safety Report 17468734 (Version 1)
Quarter: 2020Q1

REPORT INFORMATION
  Report Type: Spontaneous
  Country: US (occurrence: US)
  Receive Date: 20200227
  Receipt Date: 20200227
  Transmission Date: 20200409
  Serious: Yes (Death, Other)
  Sender: FDA-Public Use
  Company Number: NVSC2020US054182

PATIENT
  Age: 18 Year
  Sex: Female

DRUGS (1)
  1. ACETAMINOPHEN (PARACETAMOL) [Suspect]
     Active Substance: ACETAMINOPHEN
     Indication: SUICIDAL IDEATION
     Dosage: 500 MG(48 TABLET, 24-GRAM TOTAL DOSE)
     Route: 065

REACTIONS (3)
  - Acute hepatic failure [Fatal]
  - Intentional overdose [Unknown]
  - Toxicity to various agents [Unknown]
